FAERS Safety Report 9219772 (Version 1)
Quarter: 2013Q2

REPORT INFORMATION
  Report Type: Spontaneous
  Country: US (occurrence: US)
  Receive Date: 20130409
  Receipt Date: 20130409
  Transmission Date: 20140414
  Serious: No
  Sender: FDA-Public Use
  Company Number: US-ROXANE LABORATORIES, INC.-2013-RO-00471RO

PATIENT
  Age: 68 Year
  Sex: Female

DRUGS (4)
  1. FLECAINIDE [Suspect]
     Indication: ATRIAL FIBRILLATION
     Dosage: 100 MG
     Route: 048
     Dates: start: 20130405
  2. LEXAPRO [Concomitant]
     Indication: DEPRESSION
  3. ZYRTEC [Concomitant]
     Indication: SEASONAL ALLERGY
  4. ESTROGEN [Concomitant]
     Indication: POSTMENOPAUSE

REACTIONS (1)
  - Urinary incontinence [Recovered/Resolved]
